FAERS Safety Report 9122525 (Version 2)
Quarter: 2013Q2

REPORT INFORMATION
  Report Type: Spontaneous
  Country: US (occurrence: US)
  Receive Date: 20130115
  Receipt Date: 20130402
  Transmission Date: 20140414
  Serious: Yes (Other)
  Sender: FDA-Public Use
  Company Number: US-BRISTOL-MYERS SQUIBB COMPANY-17268079

PATIENT
  Age: 58 Year
  Sex: Male

DRUGS (3)
  1. YERVOY [Suspect]
     Indication: METASTATIC MALIGNANT MELANOMA
     Dosage: FOURTH DOSE SCHEDULED FOR 21ST JANUARY.?15NOV12,06DEC2012,31DEC2012,04FEB2012?DOSES:4:EXP:31OCT14
     Route: 042
     Dates: start: 20121115
  2. BENADRYL [Concomitant]
  3. DECADRON [Concomitant]
     Route: 048
     Dates: start: 20121231

REACTIONS (2)
  - Rash [Unknown]
  - Dizziness [Unknown]
